FAERS Safety Report 9688483 (Version 1)
Quarter: 2013Q4

REPORT INFORMATION
  Report Type: Spontaneous
  Country: US (occurrence: None)
  Receive Date: 20131112
  Receipt Date: 20131112
  Transmission Date: 20140711
  Serious: Yes (Other)
  Sender: FDA-Public Use
  Company Number: 1311-1412

PATIENT
  Sex: Male

DRUGS (2)
  1. EYLEA [Suspect]
     Indication: AGE-RELATED MACULAR DEGENERATION
     Dosage: 1 IN 6 WK, INTRAVITREAL
     Dates: start: 20121120
  2. PRADAXA (DABIGATRAN ETEXILATE MESILATE) [Concomitant]

REACTIONS (1)
  - Retinal haemorrhage [None]
